FAERS Safety Report 5278319-4 (Version None)
Quarter: 2007Q1

REPORT INFORMATION
  Report Type: 
  Country: None (occurrence: None)
  Receive Date: 20070328
  Receipt Date: 20070316
  Transmission Date: 20070707
  Serious: Yes (Other)
  Sender: FDA-Public Use
  Company Number: PHEH2007US03277

PATIENT
  Age: 69 Year
  Sex: Female

DRUGS (5)
  1. DIOVAN [Suspect]
     Indication: HYPERTENSION
     Dosage: 160 MG, QD
     Dates: start: 20020101, end: 20070202
  2. DIOVAN [Suspect]
     Dosage: 320 MG, QD
     Dates: start: 20070202
  3. LASIX [Concomitant]
     Indication: OEDEMA PERIPHERAL
     Dosage: 40 MG, QD
     Dates: start: 19990101
  4. INSULIN [Concomitant]
     Indication: DIABETES MELLITUS
     Dosage: ^64^ QAM, ^26^ QPM
     Dates: start: 20020101
  5. NORVASC [Concomitant]
     Indication: CARDIAC DISORDER
     Dosage: 5 MG, QD

REACTIONS (4)
  - BLOOD PRESSURE INADEQUATELY CONTROLLED [None]
  - KNEE OPERATION [None]
  - LYMPHADENOPATHY [None]
  - OEDEMA PERIPHERAL [None]
